FAERS Safety Report 24424967 (Version 1)
Quarter: 2024Q4

REPORT INFORMATION
  Report Type: Other
  Country: IN (occurrence: IN)
  Receive Date: 20241010
  Receipt Date: 20241010
  Transmission Date: 20250114
  Serious: Yes (Hospitalization)
  Sender: X GEN PHARM
  Company Number: IN-XGen Pharmaceuticals DJB, Inc.-2162806

PATIENT
  Age: 20 Year
  Sex: Male

DRUGS (2)
  1. POLYMYXIN B [Suspect]
     Active Substance: POLYMYXIN B
  2. IMIPENEM AND CILASTATIN [Concomitant]
     Active Substance: CILASTATIN SODIUM\IMIPENEM

REACTIONS (1)
  - Bartter^s syndrome [Recovered/Resolved]
